FAERS Safety Report 19413968 (Version 1)
Quarter: 2021Q2

REPORT INFORMATION
  Report Type: Spontaneous
  Country: GB (occurrence: GB)
  Receive Date: 20210614
  Receipt Date: 20210614
  Transmission Date: 20210717
  Serious: Yes (Other)
  Sender: FDA-Public Use
  Company Number: GB-GLAXOSMITHKLINE-GB2021128140

PATIENT
  Age: 39 Year
  Sex: Male
  Weight: 75 kg

DRUGS (1)
  1. AVAMYS [Suspect]
     Active Substance: FLUTICASONE FUROATE
     Indication: SEASONAL ALLERGY
     Dosage: 2 DF, QD, 2 SPRAYS IN EACH NOSTRIL ONCE A DAY
     Route: 045
     Dates: start: 20210508

REACTIONS (1)
  - Abdominal discomfort [Not Recovered/Not Resolved]
